FAERS Safety Report 4740410-6 (Version None)
Quarter: 2005Q3

REPORT INFORMATION
  Report Type: 
  Country: None (occurrence: None)
  Receive Date: 20050810
  Receipt Date: 20050727
  Transmission Date: 20060218
  Serious: Yes (Hospitalization)
  Sender: FDA-Public Use
  Company Number: DE-AMGEN-UK144596

PATIENT
  Sex: Male
  Weight: 82 kg

DRUGS (6)
  1. ARANESP [Suspect]
     Route: 058
     Dates: start: 20050420, end: 20050714
  2. LISINOPRIL [Concomitant]
     Route: 048
  3. TORSEMIDE [Concomitant]
     Route: 048
  4. PANTOPRAZOLE SODIUM [Concomitant]
     Route: 048
  5. AQUAPHOR [Concomitant]
     Route: 048
     Dates: start: 20050613
  6. NITRENDIPINE [Concomitant]
     Route: 048
     Dates: start: 20050620

REACTIONS (6)
  - ANAEMIA [None]
  - DYSPNOEA [None]
  - GENERAL PHYSICAL HEALTH DETERIORATION [None]
  - LUNG INFILTRATION [None]
  - TREATMENT NONCOMPLIANCE [None]
  - WEIGHT INCREASED [None]
